APPROVED DRUG PRODUCT: IOPAMIDOL-250 IN PLASTIC CONTAINER
Active Ingredient: IOPAMIDOL
Strength: 51%
Dosage Form/Route: INJECTABLE;INJECTION
Application: A074636 | Product #002
Applicant: HOSPIRA WORLDWIDE, INC
Approved: Dec 30, 1997 | RLD: No | RS: No | Type: DISCN